FAERS Safety Report 7620411-0 (Version None)
Quarter: 2011Q3

REPORT INFORMATION
  Report Type: 
  Country: None (occurrence: None)
  Receive Date: 20110719
  Receipt Date: 20110715
  Transmission Date: 20111222
  Serious: Yes (Death, Hospitalization, Other)
  Sender: FDA-Public Use
  Company Number: PHHY2009CA16639

PATIENT
  Sex: Female

DRUGS (18)
  1. SANDOSTATIN LAR [Suspect]
     Dosage: 50 MG EVERY 4 WEEKS
     Route: 030
     Dates: start: 20001106
  2. LASIX [Concomitant]
  3. INSULIN [Concomitant]
  4. ASPIRIN [Concomitant]
  5. SANDOSTATIN LAR [Suspect]
     Dosage: 60 MG, QMO
     Route: 030
  6. RABEPRAZOLE SODIUM [Concomitant]
  7. FUROSEMIDE [Concomitant]
  8. COZAAR [Concomitant]
     Dosage: 50 ML, UNK
  9. SANDOSTATIN LAR [Suspect]
     Dosage: 50 MG, QMO
     Route: 030
  10. METFORMIN HCL [Concomitant]
  11. METOPROLOL TARTRATE [Concomitant]
  12. ZANTAC [Concomitant]
     Dosage: 75 MG, UNK
     Route: 048
  13. LOSARTAN [Concomitant]
  14. SANDOSTATIN LAR [Suspect]
     Indication: CARCINOID TUMOUR
     Dosage: 40 MG EVERY 4 WEEKS
     Route: 030
     Dates: start: 19900401
  15. RABEPRAZOLE SODIUM [Concomitant]
  16. POTASSIUM [Concomitant]
  17. METHOTREXATE [Concomitant]
     Indication: PSORIATIC ARTHROPATHY
  18. ACETAMINOPHEN [Concomitant]

REACTIONS (21)
  - BONE MARROW FAILURE [None]
  - SCIATICA [None]
  - FLATULENCE [None]
  - CARDIAC FAILURE [None]
  - DYSPNOEA [None]
  - FATIGUE [None]
  - DRUG WITHDRAWAL SYNDROME [None]
  - BALANCE DISORDER [None]
  - MULTI-ORGAN FAILURE [None]
  - CORONARY ARTERY DISEASE [None]
  - TREMOR [None]
  - CONCUSSION [None]
  - DISORIENTATION [None]
  - INJURY [None]
  - DIZZINESS [None]
  - DEATH [None]
  - DIARRHOEA [None]
  - OEDEMA PERIPHERAL [None]
  - FLUSHING [None]
  - FALL [None]
  - HAEMOGLOBIN DECREASED [None]
